FAERS Safety Report 13428185 (Version 1)
Quarter: 2017Q2

REPORT INFORMATION
  Report Type: Report from Study
  Country: CN (occurrence: CN)
  Receive Date: 20170411
  Receipt Date: 20170411
  Transmission Date: 20170830
  Serious: Yes (Death, Life-Threatening)
  Sender: FDA-Public Use
  Company Number: CN-EISAI MEDICAL RESEARCH-E7389-04761-CLI-CN

PATIENT
  Age: 41 Year
  Sex: Female
  Weight: 54 kg

DRUGS (1)
  1. ERIBULIN [Suspect]
     Active Substance: ERIBULIN
     Indication: BREAST CANCER
     Dosage: 2.18 MG
     Route: 041
     Dates: start: 20140212, end: 20140212

REACTIONS (2)
  - Syncope [Not Recovered/Not Resolved]
  - Capillary leak syndrome [Fatal]

NARRATIVE: CASE EVENT DATE: 20140213
